FAERS Safety Report 8372694-X (Version None)
Quarter: 2012Q2

REPORT INFORMATION
  Report Type: 
  Country: None (occurrence: None)
  Receive Date: 20120521
  Receipt Date: 20120515
  Transmission Date: 20120825
  Serious: Yes (Death)
  Sender: FDA-Public Use
  Company Number: MX-CELGENEUS-163-C5013-11102449

PATIENT
  Sex: Male
  Weight: 152 kg

DRUGS (17)
  1. RANITIDINE [Concomitant]
     Dosage: 50 MILLIGRAM
     Route: 041
     Dates: start: 20110708, end: 20110708
  2. ONDANSETRON [Concomitant]
  3. DICLOFENAC SODIUM [Concomitant]
     Dosage: 100 MILLIGRAM
     Route: 048
     Dates: start: 20110902, end: 20110905
  4. ONDANSETRON [Concomitant]
     Dosage: 4 MILLIGRAM
     Route: 041
     Dates: start: 20110801, end: 20110801
  5. LENALIDOMIDE [Suspect]
     Dosage: 25 MILLIGRAM
     Route: 048
     Dates: start: 20110929, end: 20111023
  6. DOCETAXEL [Suspect]
     Dosage: 195
     Route: 065
     Dates: start: 20110929, end: 20111003
  7. PREDNISONE [Suspect]
     Indication: PROSTATE CANCER
     Dosage: 5 MILLIGRAM
     Route: 065
     Dates: start: 20110616, end: 20110620
  8. LENALIDOMIDE [Suspect]
     Indication: PROSTATE CANCER
     Dosage: 25 MILLIGRAM
     Route: 048
     Dates: start: 20110616, end: 20110620
  9. PREDNISONE [Suspect]
     Dosage: 5 MILLIGRAM
     Route: 065
     Dates: start: 20110929, end: 20111003
  10. BECLOTRIM [Concomitant]
     Route: 062
     Dates: start: 20110902, end: 20110912
  11. RANITIDINE [Concomitant]
     Indication: GASTRITIS PROPHYLAXIS
     Dosage: 50 MILLIGRAM
     Route: 041
     Dates: start: 20110620, end: 20110620
  12. METOCLOPRAMIDE [Concomitant]
     Dosage: 10 MILLIGRAM
     Route: 041
     Dates: start: 20110620, end: 20110620
  13. METOCLOPRAMIDE [Concomitant]
     Dosage: 10 MILLIGRAM
     Route: 041
     Dates: start: 20110801, end: 20110801
  14. ACETAMINOPHEN [Concomitant]
     Dosage: 500 MILLIGRAM
     Route: 048
     Dates: start: 20110902, end: 20110905
  15. DOCETAXEL [Suspect]
     Indication: PROSTATE CANCER
     Dosage: 195
     Route: 065
     Dates: start: 20110616, end: 20110620
  16. DEXAMETHASONE [Concomitant]
     Indication: ALLERGY PROPHYLAXIS
     Dosage: 8 MILLIGRAM
     Route: 041
     Dates: start: 20110620, end: 20110620
  17. CEPHALEXIN [Concomitant]
     Dosage: 500 MILLIGRAM
     Route: 048
     Dates: start: 20110902, end: 20110909

REACTIONS (2)
  - ACUTE MYOCARDIAL INFARCTION [None]
  - PNEUMONIA [None]
